FAERS Safety Report 12074976 (Version 1)
Quarter: 2016Q1

REPORT INFORMATION
  Report Type: Spontaneous
  Country: US (occurrence: US)
  Receive Date: 20160212
  Receipt Date: 20160212
  Transmission Date: 20160526
  Serious: Yes (Other)
  Sender: FDA-Public Use
  Company Number: US-LPDUSPRD-20160040

PATIENT
  Age: 30 Year
  Sex: Female

DRUGS (2)
  1. ADIPEX-P [Concomitant]
     Active Substance: PHENTERMINE HYDROCHLORIDE
     Dosage: DOSE NOT PROVIDED
     Route: 048
  2. INJECTAFER [Suspect]
     Active Substance: FERRIC CARBOXYMALTOSE
     Dosage: 750MG/100ML NS OVER 20 MIN
     Route: 042
     Dates: start: 20151210, end: 20151218

REACTIONS (6)
  - Abdominal pain [Unknown]
  - Flushing [Unknown]
  - Nausea [Unknown]
  - Tachycardia [Unknown]
  - Swelling [Unknown]
  - Hypotension [Unknown]

NARRATIVE: CASE EVENT DATE: 20151218
